FAERS Safety Report 12905530 (Version 3)
Quarter: 2017Q2

REPORT INFORMATION
  Report Type: Report from Study
  Country: JP (occurrence: JP)
  Receive Date: 20161103
  Receipt Date: 20170421
  Transmission Date: 20170830
  Serious: Yes (Death, Hospitalization)
  Sender: FDA-Public Use
  Company Number: JP-ROCHE-1587877

PATIENT
  Age: 63 Year
  Sex: Female
  Weight: 38 kg

DRUGS (3)
  1. TRASTUZUMAB EMTANSINE [Suspect]
     Active Substance: ADO-TRASTUZUMAB EMTANSINE
     Indication: BREAST CANCER
     Dosage: MOST RECENT DOSE RECEIVED ON 31/MAR/2015
     Route: 041
     Dates: start: 20150106, end: 20150331
  2. AMLODIPINE [Concomitant]
     Active Substance: AMLODIPINE BESYLATE
     Dosage: THE FRACTIONATION DOSE FREQUENCY IS UNCERTAIN.
     Route: 048
     Dates: end: 20150420
  3. TRASTUZUMAB EMTANSINE [Suspect]
     Active Substance: ADO-TRASTUZUMAB EMTANSINE
     Indication: BREAST CANCER
     Dosage: DOSAGE IS UNCERTAIN
     Route: 041
     Dates: start: 20141118, end: 20141209

REACTIONS (7)
  - Hepatic failure [Fatal]
  - Gastrointestinal haemorrhage [Fatal]
  - Portal hypertension [Fatal]
  - Oesophageal varices haemorrhage [Fatal]
  - Gastric varices [Fatal]
  - Platelet count decreased [Recovered/Resolved]
  - Hepatic atrophy [Fatal]

NARRATIVE: CASE EVENT DATE: 20141125
